FAERS Safety Report 9693870 (Version 1)
Quarter: 2013Q4

REPORT INFORMATION
  Report Type: Spontaneous
  Country: US (occurrence: US)
  Receive Date: 20131118
  Receipt Date: 20131118
  Transmission Date: 20140711
  Serious: Yes (Hospitalization)
  Sender: FDA-Public Use
  Company Number: US-UCBSA-103075

PATIENT
  Age: 52 Year
  Sex: Female

DRUGS (5)
  1. CIMZIA [Suspect]
     Dosage: UNKNOWN DOSE
  2. HUMIRA [Concomitant]
     Dosage: UNKNOWN DOSE
     Dates: start: 201306
  3. TYSABRI [Concomitant]
     Dosage: UNKNOWN DOSE
  4. TYSABRI [Concomitant]
     Dosage: UNKNOWN DOSE
  5. REMICADE [Concomitant]
     Dosage: UNKNOWN DOSE

REACTIONS (3)
  - Clostridium difficile infection [Recovering/Resolving]
  - Crohn^s disease [Recovering/Resolving]
  - Drug ineffective [Unknown]
